FAERS Safety Report 24820357 (Version 1)
Quarter: 2025Q1

REPORT INFORMATION
  Report Type: Spontaneous
  Country: US (occurrence: None)
  Receive Date: 20250108
  Receipt Date: 20250108
  Transmission Date: 20250408
  Serious: Yes (Life-Threatening, Other)
  Sender: FDA-CTU
  Company Number: None

PATIENT
  Age: 62 Year
  Sex: Female
  Weight: 47.7 kg

DRUGS (11)
  1. MOTION SICKNESS PATCH [Suspect]
     Active Substance: CAMPHOR, (-)-
     Indication: Motion sickness
     Dates: start: 20250101, end: 20250102
  2. SCOPOLAMINE [Suspect]
     Active Substance: SCOPOLAMINE
  3. ATORVASTATIN [Concomitant]
     Active Substance: ATORVASTATIN
  4. CARVEDILOL [Concomitant]
     Active Substance: CARVEDILOL
  5. CLONAZEPAM [Concomitant]
     Active Substance: CLONAZEPAM
  6. ZINC [Concomitant]
     Active Substance: ZINC
  7. VITAMIN C [Concomitant]
     Active Substance: ASCORBIC ACID
  8. PROBIOTICS NOS [Concomitant]
     Active Substance: PROBIOTICS NOS
  9. B12 [Concomitant]
  10. K2 with D3 [Concomitant]
  11. Lions Mane 1000mgw/Beta 300mg [Concomitant]

REACTIONS (7)
  - Hallucination [None]
  - Paraesthesia [None]
  - Dyskinesia [None]
  - Salivary hypersecretion [None]
  - Sleep disorder [None]
  - Hypophagia [None]
  - Blood pressure increased [None]

NARRATIVE: CASE EVENT DATE: 20250101
